FAERS Safety Report 17233609 (Version 1)
Quarter: 2020Q1

REPORT INFORMATION
  Report Type: Spontaneous
  Country: SI (occurrence: SI)
  Receive Date: 20200105
  Receipt Date: 20200105
  Transmission Date: 20200409
  Serious: Yes (Other)
  Sender: FDA-Public Use
  Company Number: SI-CELLTRION INC.-2019SI027645

PATIENT

DRUGS (14)
  1. FOLACIN [FOLIC ACID] [Concomitant]
     Active Substance: FOLIC ACID
     Dosage: 5 MG
  2. DULCOLAX (BISACODYL) [Concomitant]
     Active Substance: BISACODYL
     Dosage: UNK, AS NECESSARY
  3. BLITZIMA [Suspect]
     Active Substance: RITUXIMAB
     Indication: LYMPHOMA
     Dosage: 500 MG CONCENTRATE FOR SOLUTION FOR INFUSION
     Route: 042
     Dates: start: 20191105, end: 20191106
  4. TARDYFERON [Concomitant]
     Active Substance: FERROUS SULFATE
     Dosage: 80 MG
  5. ALDACTONE [Concomitant]
     Active Substance: SPIRONOLACTONE
     Dosage: 25 MG
  6. PANTOPRAZOLE [Concomitant]
     Active Substance: PANTOPRAZOLE
     Dosage: 40 MG
  7. SORVASTA [Concomitant]
     Active Substance: ROSUVASTATIN CALCIUM
     Dosage: 10 MG
  8. NOLVADEX [Concomitant]
     Active Substance: TAMOXIFEN CITRATE
     Dosage: 10 MG
  9. BOREZ [Concomitant]
     Dosage: 2.5 MG, BID
  10. LASIX [Concomitant]
     Active Substance: FUROSEMIDE
     Dosage: 40 MG
  11. PRENESSA [Concomitant]
     Active Substance: PERINDOPRIL
     Dosage: 2 MG
  12. CORDARONE [Concomitant]
     Active Substance: AMIODARONE HYDROCHLORIDE
     Dosage: 100 MG
  13. ASPIRIN PROTECT [Concomitant]
     Active Substance: ASPIRIN
     Dosage: 100 MG
  14. ALOPURINOL [Concomitant]
     Active Substance: ALLOPURINOL
     Dosage: ACCORDING TO THE SCHEME

REACTIONS (3)
  - Dyspnoea [Recovered/Resolved]
  - Oxygen saturation decreased [Recovered/Resolved]
  - Hypotension [Recovered/Resolved]

NARRATIVE: CASE EVENT DATE: 20191105
